FAERS Safety Report 20352443 (Version 1)
Quarter: 2022Q1

REPORT INFORMATION
  Report Type: Spontaneous
  Country: US (occurrence: None)
  Receive Date: 20220118
  Receipt Date: 20220118
  Transmission Date: 20220423
  Serious: Yes (Other)
  Sender: FDA-Public Use
  Company Number: None

PATIENT
  Age: 43 Year
  Sex: Male
  Weight: 86.4 kg

DRUGS (4)
  1. DEXTROAMPHET SACCHARAT, AMPHET ASPARTATE, DEXTROAMPHET SULFATE AND AMP [Suspect]
     Active Substance: AMPHETAMINE ASPARTATE\AMPHETAMINE SULFATE\DEXTROAMPHETAMINE SACCHARATE\DEXTROAMPHETAMINE SULFATE
     Indication: Attention deficit hyperactivity disorder
     Dates: start: 20140302, end: 20180115
  2. CLARITIN [Concomitant]
     Active Substance: LORATADINE
  3. IBUPROFEN [Concomitant]
     Active Substance: IBUPROFEN
  4. OVER THE COUNTER SLEEPING PILLS [Concomitant]

REACTIONS (10)
  - Loss of employment [None]
  - Insurance issue [None]
  - Near death experience [None]
  - Insomnia [None]
  - Fear [None]
  - Thinking abnormal [None]
  - Drug withdrawal syndrome [None]
  - Anxiety [None]
  - Panic attack [None]
  - Nightmare [None]

NARRATIVE: CASE EVENT DATE: 20180405
